FAERS Safety Report 5897078-5 (Version None)
Quarter: 2008Q3

REPORT INFORMATION
  Report Type: 
  Country: None (occurrence: None)
  Receive Date: 20080924
  Receipt Date: 20080703
  Transmission Date: 20090109
  Serious: Yes (Other)
  Sender: FDA-Public Use
  Company Number: US-ASTRAZENECA-2008UW13480

PATIENT
  Age: 46 Year
  Sex: Male
  Weight: 140.2 kg

DRUGS (13)
  1. SEROQUEL [Suspect]
     Indication: DEPRESSION
     Route: 048
     Dates: start: 20070601, end: 20080623
  2. SEROQUEL [Suspect]
     Indication: BIPOLAR DISORDER
     Route: 048
     Dates: start: 20070601, end: 20080623
  3. ROPINIROLE [Concomitant]
  4. TORSEMIDE [Concomitant]
  5. LYRICA [Concomitant]
  6. MIRAPEX [Concomitant]
  7. CARVEDILOL [Concomitant]
  8. TRAZODONE HCL [Concomitant]
  9. KLOR-CON [Concomitant]
  10. LUNESTA [Concomitant]
  11. PLAVIX [Concomitant]
  12. PROMETHAZINE [Concomitant]
  13. NOVOLIN [Concomitant]

REACTIONS (2)
  - DIABETES MELLITUS [None]
  - WEIGHT INCREASED [None]
